FAERS Safety Report 6974906-3 (Version None)
Quarter: 2010Q3

REPORT INFORMATION
  Report Type: 
  Country: None (occurrence: None)
  Receive Date: 20100909
  Receipt Date: 20090211
  Transmission Date: 20110219
  Serious: No
  Sender: FDA-Public Use
  Company Number: US-WYE-H07626609

PATIENT
  Sex: Male
  Weight: 76.73 kg

DRUGS (9)
  1. TORISEL [Suspect]
     Indication: RENAL CELL CARCINOMA
     Route: 042
     Dates: start: 20081202, end: 20081218
  2. TORISEL [Suspect]
     Route: 042
     Dates: start: 20081230
  3. ASPIRIN [Concomitant]
  4. PLAVIX [Concomitant]
  5. LISINOPRIL [Concomitant]
  6. SIMVASTATIN [Concomitant]
  7. ANZEMET [Concomitant]
  8. BENADRYL [Concomitant]
  9. COREG [Concomitant]

REACTIONS (3)
  - PETECHIAE [None]
  - PLATELET COUNT DECREASED [None]
  - RASH PAPULAR [None]
